FAERS Safety Report 9127719 (Version 1)
Quarter: 2013Q1

REPORT INFORMATION
  Report Type: Spontaneous
  Country: US (occurrence: US)
  Receive Date: 20130228
  Receipt Date: 20130228
  Transmission Date: 20140127
  Serious: No
  Sender: FDA-Public Use
  Company Number: US-GLAXOSMITHKLINE-A0995444A

PATIENT
  Sex: Female

DRUGS (7)
  1. LAMOTRIGINE [Suspect]
     Indication: CONVULSION
     Dosage: 100MG PER DAY
     Route: 048
     Dates: start: 20120629, end: 20120906
  2. MULTIVITAMIN [Concomitant]
  3. MOBIC [Concomitant]
  4. SINGULAIR [Concomitant]
  5. ADVAIR [Concomitant]
  6. FLAX OIL [Concomitant]
  7. PROBIOTIC [Concomitant]

REACTIONS (6)
  - Drug dispensing error [Recovering/Resolving]
  - Local swelling [Unknown]
  - Pharyngeal erythema [Unknown]
  - Lymphadenopathy [Unknown]
  - Somnolence [Unknown]
  - Pharyngeal oedema [Unknown]
